FAERS Safety Report 18227629 (Version 2)
Quarter: 2020Q4

REPORT INFORMATION
  Report Type: Report from Study
  Country: CA (occurrence: CA)
  Receive Date: 20200903
  Receipt Date: 20201124
  Transmission Date: 20210113
  Serious: Yes (Hospitalization, Other)
  Sender: FDA-Public Use
  Company Number: CA-JNJFOC-20200838245

PATIENT
  Age: 63 Year
  Sex: Female
  Weight: 71.67 kg

DRUGS (1)
  1. REMICADE [Suspect]
     Active Substance: INFLIXIMAB
     Indication: PSORIATIC ARTHROPATHY
     Route: 042
     Dates: start: 20120208, end: 20191223

REACTIONS (2)
  - Lung neoplasm malignant [Recovered/Resolved with Sequelae]
  - Pneumonia [Unknown]

NARRATIVE: CASE EVENT DATE: 2019
